FAERS Safety Report 24253964 (Version 8)
Quarter: 2025Q4

REPORT INFORMATION
  Report Type: Spontaneous
  Country: US (occurrence: US)
  Receive Date: 20240827
  Receipt Date: 20251201
  Transmission Date: 20260118
  Serious: No
  Sender: ROCHE
  Company Number: US-ROCHE-10000066115

PATIENT
  Age: 37 Year
  Sex: Male

DRUGS (3)
  1. HEMLIBRA [Suspect]
     Active Substance: EMICIZUMAB-KXWH
     Indication: Factor VIII deficiency
     Dosage: STRENGTH: 300MG/2ML, 60MG/0.4ML
     Route: 058
     Dates: start: 202303
  2. HEMLIBRA [Suspect]
     Active Substance: EMICIZUMAB-KXWH
     Dosage: STRENGTH: 300MG/2ML, 60MG/0.4ML
     Route: 058
     Dates: start: 20250603
  3. HEMLIBRA [Suspect]
     Active Substance: EMICIZUMAB-KXWH
     Dosage: STRENGTH: 300MG/2ML, 60MG/0.4ML
     Route: 058
     Dates: start: 202303

REACTIONS (7)
  - Haemorrhage [Recovered/Resolved]
  - Pain [Unknown]
  - Haemorrhage [Unknown]
  - Haemorrhage [Unknown]
  - Wrong technique in product usage process [Unknown]
  - Haemorrhage [Unknown]
  - Joint injury [Unknown]

NARRATIVE: CASE EVENT DATE: 20240904
